FAERS Safety Report 9134086 (Version 4)
Quarter: 2013Q2

REPORT INFORMATION
  Report Type: Spontaneous
  Country: US (occurrence: US)
  Receive Date: 20130304
  Receipt Date: 20130506
  Transmission Date: 20140414
  Serious: No
  Sender: FDA-Public Use
  Company Number: US-009507513-1303USA000087

PATIENT
  Sex: Female
  Weight: 55.33 kg

DRUGS (3)
  1. FOLLISTIM AQ CARTRIDGE [Suspect]
     Indication: ASSISTED FERTILISATION
     Dosage: 225 IU, QD
     Route: 058
     Dates: start: 20130222
  2. FOLLISTIM AQ CARTRIDGE [Suspect]
     Dosage: 450 IU, QD
     Route: 058
     Dates: end: 20130303
  3. GANIRELIX ACETATE INJECTION [Concomitant]

REACTIONS (1)
  - Oestradiol decreased [Recovered/Resolved]
